FAERS Safety Report 24994517 (Version 1)
Quarter: 2025Q1

REPORT INFORMATION
  Report Type: Spontaneous
  Country: US (occurrence: None)
  Receive Date: 20250220
  Receipt Date: 20250220
  Transmission Date: 20250408
  Serious: No
  Sender: FDA-CTU
  Company Number: None

PATIENT
  Age: 65 Year
  Sex: Male
  Weight: 97 kg

DRUGS (2)
  1. HEPARIN SODIUM, PORCINE [Suspect]
     Active Substance: HEPARIN SODIUM
     Indication: Pulmonary embolism
     Route: 042
     Dates: start: 20241217, end: 20241221
  2. CLOPIDOGREL BISULFATE [Suspect]
     Active Substance: CLOPIDOGREL BISULFATE
     Indication: Transient ischaemic attack
     Dosage: FREQUENCY : DAILY;?
     Route: 048
     Dates: start: 20241218, end: 20241221

REACTIONS (1)
  - Epistaxis [None]

NARRATIVE: CASE EVENT DATE: 20241221
